FAERS Safety Report 10057951 (Version 1)
Quarter: 2014Q2

REPORT INFORMATION
  Report Type: Spontaneous
  Country: AT (occurrence: AT)
  Receive Date: 20140404
  Receipt Date: 20140404
  Transmission Date: 20141212
  Serious: Yes (Other)
  Sender: FDA-Public Use
  Company Number: AT-ELI_LILLY_AND_COMPANY-AT201403009117

PATIENT
  Sex: Male

DRUGS (3)
  1. STRATTERA [Suspect]
     Indication: ATTENTION DEFICIT/HYPERACTIVITY DISORDER
     Dosage: 40 MG, UNKNOWN
     Route: 048
     Dates: start: 201311
  2. SEROQUEL [Concomitant]
     Indication: PRODUCT USED FOR UNKNOWN INDICATION
     Dosage: 25 MG, OTHER
     Route: 048
     Dates: start: 201312
  3. TRITTICO [Concomitant]
     Indication: SLEEP DISORDER
     Dosage: 100 MG, UNKNOWN
     Route: 048
     Dates: start: 201311, end: 201312

REACTIONS (2)
  - Aortic valve incompetence [Recovered/Resolved]
  - Congestive cardiomyopathy [Recovered/Resolved]
